FAERS Safety Report 16736035 (Version 2)
Quarter: 2019Q3

REPORT INFORMATION
  Report Type: Spontaneous
  Country: CN (occurrence: CN)
  Receive Date: 20190823
  Receipt Date: 20190828
  Transmission Date: 20191005
  Serious: Yes (Hospitalization, Other)
  Sender: FDA-Public Use
  Company Number: CN-ASTRAZENECA-2019SF19822

PATIENT
  Age: 67 Year
  Sex: Female

DRUGS (5)
  1. TAGRISSO [Suspect]
     Active Substance: OSIMERTINIB
     Indication: NON-SMALL CELL LUNG CANCER
     Dosage: HALF TABLET
     Route: 048
  2. TAGRISSO [Suspect]
     Active Substance: OSIMERTINIB
     Indication: NON-SMALL CELL LUNG CANCER
     Route: 048
  3. TAGRISSO [Suspect]
     Active Substance: OSIMERTINIB
     Indication: METASTASES TO CENTRAL NERVOUS SYSTEM
     Dosage: HALF TABLET
     Route: 048
  4. IRESSA [Suspect]
     Active Substance: GEFITINIB
     Indication: LUNG NEOPLASM MALIGNANT
     Route: 048
  5. TAGRISSO [Suspect]
     Active Substance: OSIMERTINIB
     Indication: METASTASES TO CENTRAL NERVOUS SYSTEM
     Route: 048

REACTIONS (20)
  - Metastases to central nervous system [Unknown]
  - Thrombocytopenia [Not Recovered/Not Resolved]
  - Akathisia [Unknown]
  - Weight decreased [Unknown]
  - Tumour compression [Unknown]
  - Emotional disorder [Unknown]
  - General physical health deterioration [Unknown]
  - Product dose omission [Unknown]
  - Neuromyopathy [Not Recovered/Not Resolved]
  - Drug ineffective [Unknown]
  - Irritability [Unknown]
  - Injection site mass [Unknown]
  - Malaise [Unknown]
  - Mental impairment [Unknown]
  - Insomnia [Not Recovered/Not Resolved]
  - Crying [Not Recovered/Not Resolved]
  - Vascular neoplasm [Unknown]
  - Decreased appetite [Unknown]
  - Dysarthria [Not Recovered/Not Resolved]
  - Mood altered [Unknown]

NARRATIVE: CASE EVENT DATE: 201906
